FAERS Safety Report 11226324 (Version 2)
Quarter: 2015Q3

REPORT INFORMATION
  Report Type: Spontaneous
  Country: US (occurrence: US)
  Receive Date: 20150629
  Receipt Date: 20150702
  Transmission Date: 20151125
  Serious: Yes (Life-Threatening, Hospitalization, Other)
  Sender: FDA-Public Use
  Company Number: US-GLAXOSMITHKLINE-A0860734A

PATIENT
  Sex: Male

DRUGS (1)
  1. LAMICTAL [Suspect]
     Active Substance: LAMOTRIGINE
     Indication: SEIZURE
     Dosage: UNK, U
     Route: 065

REACTIONS (10)
  - Head injury [Unknown]
  - Accident [Recovered/Resolved]
  - Seizure [Not Recovered/Not Resolved]
  - Activities of daily living impaired [Unknown]
  - Loss of consciousness [Unknown]
  - Hospitalisation [Unknown]
  - Memory impairment [Not Recovered/Not Resolved]
  - Foaming at mouth [Unknown]
  - Dyspnoea [Unknown]
  - Drug ineffective [Unknown]

NARRATIVE: CASE EVENT DATE: 2009
